FAERS Safety Report 5303293-1 (Version None)
Quarter: 2007Q2

REPORT INFORMATION
  Report Type: 
  Country: None (occurrence: None)
  Receive Date: 20070420
  Receipt Date: 20070412
  Transmission Date: 20071010
  Serious: Yes (Other)
  Sender: FDA-Public Use
  Company Number: JP-GLAXOSMITHKLINE-B0461064A

PATIENT
  Age: 11 Year
  Sex: Female
  Weight: 36 kg

DRUGS (6)
  1. RELENZA [Suspect]
     Indication: INFLUENZA
     Dosage: 10MG TWICE PER DAY
     Route: 055
     Dates: start: 20070303, end: 20070305
  2. CHINESE MEDICINE [Concomitant]
     Indication: INFLUENZA
     Dosage: 4G PER DAY
     Route: 048
     Dates: start: 20070303, end: 20070306
  3. CALONAL [Concomitant]
     Indication: INFLUENZA
     Route: 048
     Dates: start: 20070303, end: 20070304
  4. UNKNOWN DRUG [Concomitant]
  5. SERRAPEPTASE [Concomitant]
  6. CEFDITOREN PIVOXIL [Concomitant]

REACTIONS (7)
  - ABNORMAL BEHAVIOUR [None]
  - AGITATION [None]
  - DIZZINESS [None]
  - HEADACHE [None]
  - MALAISE [None]
  - SUICIDAL IDEATION [None]
  - VERTIGO [None]
